FAERS Safety Report 16111538 (Version 1)
Quarter: 2019Q1

REPORT INFORMATION
  Report Type: Report from Study
  Country: US (occurrence: US)
  Receive Date: 20190325
  Receipt Date: 20190325
  Transmission Date: 20190418
  Serious: Yes (Other)
  Sender: FDA-Public Use
  Company Number: US-MALLINCKRODT-T201902419

PATIENT
  Sex: Female

DRUGS (1)
  1. REPOSITORY CORTICOTROPIN INJECTION [Suspect]
     Active Substance: CORTICOTROPIN
     Indication: RHEUMATOID ARTHRITIS
     Dosage: 20 UNITS /0.25 ML, 2 TIMES PER WEEK
     Route: 030
     Dates: start: 20180515

REACTIONS (4)
  - Blood glucose fluctuation [Not Recovered/Not Resolved]
  - Incontinence [Not Recovered/Not Resolved]
  - Weight increased [Unknown]
  - Headache [Unknown]
